FAERS Safety Report 8798945 (Version 1)
Quarter: 2012Q4

REPORT INFORMATION
  Report Type: Spontaneous
  Country: US (occurrence: None)
  Receive Date: 20120918
  Receipt Date: 20120918
  Transmission Date: 20130627
  Serious: No
  Sender: FDA-Public Use
  Company Number: None

PATIENT
  Sex: Female
  Weight: 32.21 kg

DRUGS (1)
  1. CONCERTA [Suspect]
     Indication: ATTENTION DEFICIT DISORDER
     Dosage: 18mg 1 Qday po
     Route: 048
     Dates: start: 20120913, end: 20120914

REACTIONS (4)
  - Screaming [None]
  - Hallucination, visual [None]
  - Heart rate increased [None]
  - Depressed mood [None]
